FAERS Safety Report 8492932 (Version 3)
Quarter: 2012Q4

REPORT INFORMATION
  Report Type: 
  Country: US (occurrence: US)
  Receive Date: 20120404
  Receipt Date: 20120918
  Transmission Date: 20130627
  Serious: Yes (Hospitalization)
  Sender: FDA-Public Use
  Company Number: US-BAYER-2012-029508

PATIENT
  Age: 19 Year
  Sex: Female
  Weight: 58.05 kg

DRUGS (3)
  1. YAZ [Suspect]
     Indication: CONTRACEPTION
     Dosage: UNK
     Dates: start: 200910, end: 201010
  2. OCELLA [Suspect]
     Indication: CONTRACEPTION
  3. PLAVIX [Concomitant]

REACTIONS (1)
  - Cerebrovascular accident [Recovered/Resolved]
